FAERS Safety Report 10258125 (Version 3)
Quarter: 2014Q3

REPORT INFORMATION
  Report Type: Spontaneous
  Country: US (occurrence: None)
  Receive Date: 20140623
  Receipt Date: 20140813
  Transmission Date: 20150326
  Serious: Yes (Hospitalization, Other)
  Sender: FDA-Public Use
  Company Number: UNT-2014-002228

PATIENT
  Age: 39 Year
  Sex: Female
  Weight: 44.9 kg

DRUGS (3)
  1. COUMADIN /00014802/ (WARFARIN SODIUM) [Concomitant]
  2. TRACLEER /01587701/ (BOSENTAN) [Concomitant]
  3. REMODULIN [Suspect]
     Active Substance: TREPROSTINIL
     Indication: COR PULMONALE CHRONIC
     Dosage: 0.024 UG/KG, CONTINUING, SUBCUTANEOUS
     Route: 058
     Dates: start: 20061214

REACTIONS (5)
  - Syncope [None]
  - Renal disorder [None]
  - Hypotension [None]
  - Loss of consciousness [None]
  - Fluid retention [None]

NARRATIVE: CASE EVENT DATE: 20140526
